FAERS Safety Report 8368239-0 (Version None)
Quarter: 2012Q2

REPORT INFORMATION
  Report Type: 
  Country: None (occurrence: None)
  Receive Date: 20120517
  Receipt Date: 20120516
  Transmission Date: 20120825
  Serious: Yes (Death)
  Sender: FDA-Public Use
  Company Number: FR-MERCK-1205FRA00073

PATIENT
  Age: 69 Year
  Sex: Male

DRUGS (4)
  1. ROSUVASTATIN CALCIUM [Suspect]
     Route: 048
     Dates: end: 20100919
  2. AMIODARONE HYDROCHLORIDE [Suspect]
     Route: 048
     Dates: start: 20100708, end: 20100901
  3. ZOCOR [Suspect]
     Route: 065
     Dates: end: 20020101
  4. ZOCOR [Suspect]
     Route: 048
     Dates: start: 20030101

REACTIONS (2)
  - PNEUMONIA [None]
  - LUNG DISORDER [None]
